FAERS Safety Report 7153047-9 (Version None)
Quarter: 2010Q4

REPORT INFORMATION
  Report Type: 
  Country: None (occurrence: None)
  Receive Date: 20101213
  Receipt Date: 20101203
  Transmission Date: 20110411
  Serious: Yes (Death, Other)
  Sender: FDA-Public Use
  Company Number: HU-GENZYME-CLOF-1001213

PATIENT
  Sex: Female
  Weight: 18 kg

DRUGS (29)
  1. EVOLTRA [Suspect]
     Indication: ACUTE LYMPHOCYTIC LEUKAEMIA
     Dosage: 50 MG/M2, QDX4
     Route: 042
     Dates: start: 20090423, end: 20090427
  2. BUSILVEX [Suspect]
     Indication: ACUTE LYMPHOCYTIC LEUKAEMIA
     Dosage: 0.8 MG/KG, 2X/W
     Route: 042
     Dates: start: 20090423, end: 20090427
  3. CYCLOSPORINE [Concomitant]
     Indication: PROPHYLAXIS AGAINST GRAFT VERSUS HOST DISEASE
     Dosage: UNK
     Route: 065
  4. METHOTREXATE [Concomitant]
     Indication: PROPHYLAXIS AGAINST GRAFT VERSUS HOST DISEASE
     Dosage: 10 MG/M2, QD
     Route: 065
     Dates: start: 20090502, end: 20090502
  5. METHOTREXATE [Concomitant]
     Indication: ACUTE LYMPHOCYTIC LEUKAEMIA
  6. METHOTREXATE [Concomitant]
     Indication: ACUTE LYMPHOCYTIC LEUKAEMIA
     Dosage: 10 MG/M2, QD
     Route: 065
     Dates: start: 20090504, end: 20090504
  7. METHOTREXATE [Concomitant]
     Dosage: 10 MG/M2, QD
     Route: 065
     Dates: start: 20090507, end: 20090507
  8. METHOTREXATE [Concomitant]
     Dosage: 10 MG/M2, QD
     Route: 065
     Dates: start: 20090512, end: 20090512
  9. ANTI-THYMOCYTE GLOBULIN NOS [Concomitant]
     Indication: ACUTE LYMPHOCYTIC LEUKAEMIA
     Dosage: 60 MG, 2X/W
     Route: 065
     Dates: start: 20090428, end: 20090429
  10. 6-TG [Concomitant]
     Indication: ACUTE LYMPHOCYTIC LEUKAEMIA
     Dosage: UNK
     Route: 065
     Dates: start: 20090302, end: 20090326
  11. 6-TG [Concomitant]
     Dosage: UNK
     Route: 065
     Dates: start: 20090326, end: 20090326
  12. 6-TG [Concomitant]
     Dosage: UNK
     Route: 065
     Dates: start: 20090406, end: 20090412
  13. 6-TG [Concomitant]
     Dosage: UNK
     Route: 065
     Dates: start: 20090414, end: 20090420
  14. MYLOTARG [Concomitant]
     Indication: ACUTE LYMPHOCYTIC LEUKAEMIA
     Dosage: UNK
     Route: 065
     Dates: start: 20090302, end: 20090326
  15. MYLOTARG [Concomitant]
     Dosage: UNK
     Route: 065
     Dates: start: 20090326, end: 20090326
  16. MYLOTARG [Concomitant]
     Dosage: UNK
     Route: 065
     Dates: start: 20090406, end: 20090412
  17. MYLOTARG [Concomitant]
     Dosage: UNK
     Route: 065
     Dates: start: 20090414, end: 20090420
  18. CYTARABINE [Concomitant]
     Indication: ACUTE LYMPHOCYTIC LEUKAEMIA
     Dosage: UNK
     Route: 065
     Dates: start: 20090302, end: 20090326
  19. CYTARABINE [Concomitant]
     Dosage: UNK
     Route: 065
     Dates: start: 20090326, end: 20090326
  20. CYTARABINE [Concomitant]
     Dosage: UNK
     Route: 065
     Dates: start: 20090406, end: 20090412
  21. CYTARABINE [Concomitant]
     Dosage: UNK
     Route: 065
     Dates: start: 20090417, end: 20090420
  22. VFEND [Concomitant]
     Indication: NEUTROPENIA
     Dosage: 80 MG, QD
     Route: 042
     Dates: start: 20090323, end: 20090625
  23. MEROPENEM [Concomitant]
     Indication: NEUTROPENIA
     Dosage: 360 MG, QD
     Route: 042
     Dates: start: 20090403, end: 20090424
  24. MEROPENEM [Concomitant]
     Indication: PYREXIA
  25. VIROLEX [Concomitant]
     Indication: PROPHYLAXIS
     Dosage: 250 MG, QD
     Route: 042
     Dates: start: 20090423, end: 20090805
  26. PRECYCLAN [Concomitant]
     Indication: PROPHYLAXIS
     Dosage: 400 MG, QD
     Route: 048
     Dates: start: 20090422, end: 20090605
  27. PRECYCLAN [Concomitant]
     Indication: LIVER DISORDER
  28. PRILOSEC [Concomitant]
     Indication: PROPHYLAXIS
     Dosage: 20 MG, QD
     Route: 042
     Dates: start: 20090414, end: 20090805
  29. TENIF [Concomitant]
     Indication: HYPERTENSION
     Dosage: 6.25 MG, QD
     Route: 048
     Dates: start: 20090429, end: 20090805

REACTIONS (6)
  - ACUTE GRAFT VERSUS HOST DISEASE IN INTESTINE [None]
  - ACUTE GRAFT VERSUS HOST DISEASE IN LIVER [None]
  - ACUTE GRAFT VERSUS HOST DISEASE IN SKIN [None]
  - GRAFT VERSUS HOST DISEASE [None]
  - LIVER DISORDER [None]
  - MULTI-ORGAN FAILURE [None]
